FAERS Safety Report 8027334-6 (Version None)
Quarter: 2012Q1

REPORT INFORMATION
  Report Type: 
  Country: None (occurrence: None)
  Receive Date: 20120106
  Receipt Date: 20111227
  Transmission Date: 20120608
  Serious: Yes (Other)
  Sender: FDA-Public Use
  Company Number: JP-BRISTOL-MYERS SQUIBB COMPANY-16284895

PATIENT
  Age: 85 Year
  Sex: Male

DRUGS (11)
  1. CARVEDILOL [Concomitant]
  2. METFORMIN HCL [Concomitant]
     Indication: DIABETES MELLITUS
     Route: 048
  3. AMARYL [Concomitant]
     Indication: DIABETES MELLITUS
     Dates: end: 20100501
  4. METFORMIN HCL [Suspect]
     Indication: TYPE 2 DIABETES MELLITUS
     Dosage: 250MG,500MG,750MG,1000MG-OCT2006 1000MG 13MAY-8JUL10
     Route: 048
     Dates: start: 20100513
  5. ACTOS [Concomitant]
     Indication: DIABETES MELLITUS
     Dates: end: 20051121
  6. PERINDOPRIL ERBUMINE [Concomitant]
  7. INDAPAMIDE [Concomitant]
     Dosage: ALSO 0.8MG
  8. LANSOPRAZOLE [Concomitant]
  9. LIPITOR [Concomitant]
     Indication: CAROTID ARTERY STENOSIS
     Dosage: ALSO 5MG, 10MG
     Dates: start: 20061001
  10. ASPIRIN [Concomitant]
     Route: 048
  11. NORVASC [Concomitant]

REACTIONS (1)
  - RHABDOMYOLYSIS [None]
